FAERS Safety Report 20981086 (Version 1)
Quarter: 2022Q2

REPORT INFORMATION
  Report Type: Spontaneous
  Country: FR (occurrence: FR)
  Receive Date: 20220620
  Receipt Date: 20220620
  Transmission Date: 20220721
  Serious: Yes (Death)
  Sender: FDA-Public Use
  Company Number: None

PATIENT
  Age: 58 Year
  Sex: Female
  Weight: 53 kg

DRUGS (3)
  1. ZIRABEV [Suspect]
     Active Substance: BEVACIZUMAB-BVZR
     Indication: Colorectal adenocarcinoma
     Dosage: 1 DF, CYCLIC
     Route: 041
     Dates: start: 202202, end: 202204
  2. BISOPROLOL [Suspect]
     Active Substance: BISOPROLOL
     Indication: Tachycardia
     Dosage: 7.5 MG, 1X/DAY
     Route: 048
     Dates: start: 20220506, end: 202205
  3. CAPECITABINE [Suspect]
     Active Substance: CAPECITABINE
     Indication: Colorectal adenocarcinoma
     Dosage: 2 G, 1X/DAY
     Route: 048
     Dates: start: 202108, end: 202205

REACTIONS (2)
  - Acute myocardial infarction [Fatal]
  - Cardio-respiratory arrest [Fatal]

NARRATIVE: CASE EVENT DATE: 20220512
